FAERS Safety Report 8037613-4 (Version None)
Quarter: 2011Q4

REPORT INFORMATION
  Report Type: 
  Country: None (occurrence: None)
  Receive Date: 20111202
  Receipt Date: 20100930
  Transmission Date: 20120403
  Serious: Yes (Other)
  Sender: FDA-Public Use
  Company Number: WAES 1009USA00388

PATIENT
  Age: 66 Year
  Sex: Female
  Weight: 60.3284 kg

DRUGS (7)
  1. FOSAMAX [Suspect]
     Indication: OSTEOPENIA
     Dosage: 70 MG/WKY/PO
     Route: 048
     Dates: start: 19991201, end: 20100810
  2. VITAMIN D (UNSPECIFIED) [Concomitant]
  3. METHOTREXATE [Concomitant]
  4. PREDNISONE TAB [Concomitant]
  5. CELEBREX [Concomitant]
  6. SULFASALAZINE [Concomitant]
  7. HYDROXYCHLOROQUINE SULFATE [Concomitant]

REACTIONS (1)
  - OSTEONECROSIS OF JAW [None]
